FAERS Safety Report 6426040-9 (Version None)
Quarter: 2009Q4

REPORT INFORMATION
  Report Type: 
  Country: None (occurrence: None)
  Receive Date: 20091104
  Receipt Date: 20091026
  Transmission Date: 20100525
  Serious: Yes (Hospitalization, Other)
  Sender: FDA-Public Use
  Company Number: US-BIOGENIDEC-2009BI030286

PATIENT
  Sex: Female
  Weight: 66 kg

DRUGS (10)
  1. TYSABRI [Suspect]
     Indication: MULTIPLE SCLEROSIS
     Route: 042
     Dates: start: 20070518, end: 20090701
  2. LYRICA [Concomitant]
     Route: 048
  3. HYDROCHLOROTHIAZIDE [Concomitant]
     Route: 048
  4. SPIRIVA [Concomitant]
     Route: 055
  5. TRAZODONE [Concomitant]
     Route: 048
  6. VITAMIN D [Concomitant]
     Route: 048
  7. BENICAR [Concomitant]
     Route: 048
  8. PEPCID [Concomitant]
     Route: 048
  9. FOLIC ACID [Concomitant]
     Route: 048
  10. CYMBALTA [Concomitant]
     Route: 048

REACTIONS (18)
  - ALCOHOLISM [None]
  - ASTHENIA [None]
  - BALANCE DISORDER [None]
  - CONVULSION [None]
  - DEAFNESS [None]
  - DEPRESSION [None]
  - DIZZINESS [None]
  - FATIGUE [None]
  - FEMUR FRACTURE [None]
  - HEADACHE [None]
  - HYPERTENSION [None]
  - INSOMNIA [None]
  - PARAESTHESIA [None]
  - RENAL IMPAIRMENT [None]
  - URINARY TRACT INFECTION [None]
  - VISUAL IMPAIRMENT [None]
  - VITAMIN D DEFICIENCY [None]
  - WEIGHT DECREASED [None]
